APPROVED DRUG PRODUCT: NAPROXEN AND ESOMEPRAZOLE MAGNESIUM
Active Ingredient: ESOMEPRAZOLE MAGNESIUM; NAPROXEN
Strength: EQ 20MG BASE;500MG
Dosage Form/Route: TABLET, DELAYED RELEASE;ORAL
Application: A217738 | Product #002 | TE Code: AB
Applicant: SCIEGEN PHARMACEUTICALS INC
Approved: Oct 11, 2023 | RLD: No | RS: No | Type: RX